FAERS Safety Report 26108333 (Version 1)
Quarter: 2025Q4

REPORT INFORMATION
  Report Type: Spontaneous
  Country: US (occurrence: None)
  Receive Date: 20251129
  Receipt Date: 20251129
  Transmission Date: 20260117
  Serious: Yes (Life-Threatening)
  Sender: FDA-CTU
  Company Number: None

PATIENT
  Age: 72 Year
  Sex: Female
  Weight: 97 kg

DRUGS (1)
  1. TNKASE [Suspect]
     Active Substance: TENECTEPLASE
     Indication: Cerebrovascular accident
     Dosage: 25 MG X1 INTRAVENOUS
     Route: 042
     Dates: start: 20250924, end: 20250924

REACTIONS (2)
  - Cerebral haemorrhage [None]
  - Injection related reaction [None]

NARRATIVE: CASE EVENT DATE: 20250924
